FAERS Safety Report 6127054-9 (Version None)
Quarter: 2009Q1

REPORT INFORMATION
  Report Type: 
  Country: None (occurrence: None)
  Receive Date: 20090320
  Receipt Date: 20090317
  Transmission Date: 20090719
  Serious: No
  Sender: FDA-Public Use
  Company Number: US-B.I. PHARMACEUTICALS,INC./RIDGEFIELD-2009-BP-03320BP

PATIENT

DRUGS (3)
  1. SPIRIVA [Suspect]
  2. ADVAIR HFA [Concomitant]
  3. NEBULIZER [Concomitant]

REACTIONS (1)
  - DRUG INEFFECTIVE [None]
